FAERS Safety Report 5227334-5 (Version None)
Quarter: 2007Q1

REPORT INFORMATION
  Report Type: 
  Country: None (occurrence: None)
  Receive Date: 20070202
  Receipt Date: 20070130
  Transmission Date: 20070707
  Serious: Yes (Disabling, Other)
  Sender: FDA-Public Use
  Company Number: US-MERCK-0701USA05057

PATIENT
  Age: 84 Year
  Sex: Female

DRUGS (8)
  1. JANUVIA [Suspect]
     Indication: BLOOD GLUCOSE
     Route: 048
  2. ASPIRIN [Concomitant]
     Route: 065
  3. CRESTOR [Concomitant]
     Route: 065
  4. ACTOS [Concomitant]
     Route: 065
  5. DIOVAN HCT [Concomitant]
     Route: 065
  6. NEXIUM [Concomitant]
     Route: 065
  7. GLIPIZIDE [Concomitant]
     Route: 065
  8. PLETAL [Concomitant]
     Route: 065

REACTIONS (1)
  - RECTAL DISCHARGE [None]
